FAERS Safety Report 9719615 (Version 1)
Quarter: 2013Q4

REPORT INFORMATION
  Report Type: Spontaneous
  Country: US (occurrence: US)
  Receive Date: 20131128
  Receipt Date: 20131128
  Transmission Date: 20140711
  Serious: No
  Sender: FDA-Public Use
  Company Number: US-B.I. PHARMACEUTICALS,INC./RIDGEFIELD-2013-BI-38011BP

PATIENT
  Sex: Female

DRUGS (1)
  1. ATROVENT [Suspect]
     Indication: CHRONIC OBSTRUCTIVE PULMONARY DISEASE
     Dosage: 136 MCG
     Route: 055
     Dates: start: 201310

REACTIONS (1)
  - Bronchitis [Recovered/Resolved]
